FAERS Safety Report 5591274-2 (Version None)
Quarter: 2008Q1

REPORT INFORMATION
  Report Type: 
  Country: None (occurrence: None)
  Receive Date: 20080110
  Receipt Date: 20080110
  Transmission Date: 20080703
  Serious: Yes (Hospitalization)
  Sender: FDA-Public Use
  Company Number: None

PATIENT
  Age: 66 Year
  Sex: Female
  Weight: 84.4 kg

DRUGS (12)
  1. ATORVASTATIN CALCIUM [Suspect]
     Indication: HYPERLIPIDAEMIA
     Dosage: 10 MG  ONCE DAILY PO (PRIOR TO ADMISSION)
     Route: 048
  2. METFORMIN HCL [Suspect]
     Indication: TYPE 2 DIABETES MELLITUS
     Dosage: 500 MG  TWICE DAILY  PO  (PRIOR TO ADMISSION)
     Route: 048
  3. SUCRALFATE [Concomitant]
  4. ASPART INSULIN [Concomitant]
  5. INSULIN GLARGINE [Concomitant]
  6. LEVETIRACETAM [Concomitant]
  7. METOPROLOL TARTRATE [Concomitant]
  8. MULTI-VITAMIN [Concomitant]
  9. RISPERDAL [Concomitant]
  10. CEFTRIAXONE [Concomitant]
  11. AMOXICILLIN [Concomitant]
  12. ASPIRIN [Concomitant]

REACTIONS (7)
  - HAEMODIALYSIS [None]
  - LACTIC ACIDOSIS [None]
  - MYALGIA [None]
  - RENAL FAILURE ACUTE [None]
  - RHABDOMYOLYSIS [None]
  - URINARY TRACT INFECTION [None]
  - VIRAL INFECTION [None]
